FAERS Safety Report 13823124 (Version 1)
Quarter: 2017Q3

REPORT INFORMATION
  Report Type: Report from Study
  Country: None (occurrence: US)
  Receive Date: 20170801
  Receipt Date: 20170801
  Transmission Date: 20171127
  Serious: Yes (Other)
  Sender: FDA-Public Use
  Company Number: US-ABBVIE-16K-163-1710375-00

PATIENT
  Age: 34 Year
  Sex: Female
  Weight: 89.89 kg

DRUGS (11)
  1. BACTRIM [Suspect]
     Active Substance: SULFAMETHOXAZOLE\TRIMETHOPRIM
     Indication: POSTOPERATIVE WOUND INFECTION
     Route: 065
     Dates: start: 201609, end: 201609
  2. IRON [Concomitant]
     Active Substance: IRON
     Indication: HAEMORRHAGE
  3. SINGULAIR [Concomitant]
     Active Substance: MONTELUKAST SODIUM
     Indication: ASTHMA
  4. HUMIRA [Suspect]
     Active Substance: ADALIMUMAB
     Route: 058
     Dates: start: 20160218, end: 20160218
  5. PROTONIX [Concomitant]
     Active Substance: PANTOPRAZOLE SODIUM
     Indication: GASTROOESOPHAGEAL REFLUX DISEASE
  6. HUMIRA [Suspect]
     Active Substance: ADALIMUMAB
     Indication: COLITIS ULCERATIVE
     Route: 058
     Dates: start: 20160204, end: 20160204
  7. DULERA [Concomitant]
     Active Substance: FORMOTEROL FUMARATE DIHYDRATE\MOMETASONE FUROATE
     Indication: ASTHMA
     Route: 055
  8. PROVENTIL [Concomitant]
     Active Substance: ALBUTEROL
     Indication: ASTHMA
  9. HUMIRA [Suspect]
     Active Substance: ADALIMUMAB
     Route: 058
     Dates: start: 20160303, end: 20160812
  10. HUMIRA [Suspect]
     Active Substance: ADALIMUMAB
     Route: 058
     Dates: start: 201611, end: 2016
  11. HUMIRA [Suspect]
     Active Substance: ADALIMUMAB
     Route: 058
     Dates: start: 2016, end: 201703

REACTIONS (13)
  - Uterine hypotonus [Not Recovered/Not Resolved]
  - Live birth [Unknown]
  - Drug specific antibody [Not Recovered/Not Resolved]
  - Obstructed labour [Not Recovered/Not Resolved]
  - Escherichia infection [Recovered/Resolved]
  - Suppressed lactation [Not Recovered/Not Resolved]
  - Vomiting in pregnancy [Recovered/Resolved]
  - Colitis ulcerative [Recovering/Resolving]
  - Exposure during pregnancy [Unknown]
  - Oral pruritus [Recovered/Resolved]
  - Drug level decreased [Not Recovered/Not Resolved]
  - Lip swelling [Recovered/Resolved]
  - Wound infection staphylococcal [Recovered/Resolved]

NARRATIVE: CASE EVENT DATE: 2016
